FAERS Safety Report 11109297 (Version 2)
Quarter: 2015Q2

REPORT INFORMATION
  Report Type: Spontaneous
  Country: JP (occurrence: None)
  Receive Date: 20150511
  Receipt Date: 20150602
  Transmission Date: 20150821
  Serious: Yes (Hospitalization)
  Sender: FDA-Public Use
  Company Number: 2015FE01438

PATIENT
  Age: 77 Year
  Sex: Male
  Weight: 54 kg

DRUGS (21)
  1. NAUZELIN (DOMPERIDONE) [Concomitant]
  2. TELEMINSOFT (BISACODYL) [Concomitant]
  3. BICALUTAMIDE. [Concomitant]
     Active Substance: BICALUTAMIDE
  4. CELECOX (CELECOXIB) [Concomitant]
     Active Substance: CELECOXIB
  5. CEFAZOLIN (CEFAZOLIN) [Concomitant]
     Active Substance: CEFAZOLIN
  6. ACTIT (MAGNESIUM CHLORIDE, MALTOSE, POTASSIUM CHLORIDE, POTASSIUM PHOSPHATE DIBASIC, SODIUM ACETATE, SODIUM CHLORIDE) [Concomitant]
  7. SODIUM CHLORIDE. [Concomitant]
     Active Substance: SODIUM CHLORIDE
  8. GONAX (DEGARELIX) POWDER AND SOLVENT FOR SOLUTION FOR INJECTION [Suspect]
     Active Substance: DEGARELIX
     Indication: PROSTATE CANCER
     Dosage: 240 MG, ONCE/SINGLE
     Route: 058
     Dates: start: 20141229, end: 20141229
  9. CASODEX [Concomitant]
     Active Substance: BICALUTAMIDE
  10. MAGNESIUM OXIDE. [Concomitant]
     Active Substance: MAGNESIUM OXIDE
  11. MALTOSE [Concomitant]
     Active Substance: MALTOSE
  12. POTASSIUM CHLORIDE. [Concomitant]
     Active Substance: POTASSIUM CHLORIDE
  13. DOMPERIDONE [Concomitant]
     Active Substance: DOMPERIDONE
  14. SENNOSIDE A+B CALCIUM [Concomitant]
     Active Substance: SENNOSIDES A AND B
  15. BISACODYL. [Concomitant]
     Active Substance: BISACODYL
  16. MAGNESIUM CHLORIDE. [Concomitant]
     Active Substance: MAGNESIUM CHLORIDE
  17. POTASSIUM PHOSPHATE DIBASIC [Concomitant]
  18. SODIUM ACETATE. [Concomitant]
     Active Substance: SODIUM ACETATE
  19. AMLODIPINE [Concomitant]
     Active Substance: AMLODIPINE BESYLATE
  20. MAGMITT (MAGNESIUM OXIDE) [Concomitant]
     Active Substance: MAGNESIUM OXIDE
  21. PURSENNID (SENNA ALEXANDRINA LEAF) [Concomitant]

REACTIONS (2)
  - Neutrophil count decreased [None]
  - Neutropenia [None]

NARRATIVE: CASE EVENT DATE: 20150216
